FAERS Safety Report 8245813-3 (Version None)
Quarter: 2012Q1

REPORT INFORMATION
  Report Type: 
  Country: None (occurrence: None)
  Receive Date: 20120330
  Receipt Date: 20120321
  Transmission Date: 20120608
  Serious: No
  Sender: FDA-Public Use
  Company Number: US-BIOGENIDEC-2012BI010143

PATIENT
  Age: 62 Year
  Sex: Female

DRUGS (2)
  1. AVONEX [Suspect]
     Indication: MULTIPLE SCLEROSIS
     Route: 030
     Dates: start: 20120118
  2. TYLENOL [Concomitant]
     Indication: PREMEDICATION

REACTIONS (7)
  - TREMOR [None]
  - BONE PAIN [None]
  - ASTHENIA [None]
  - INJECTION SITE HAEMORRHAGE [None]
  - CHILLS [None]
  - PAIN [None]
  - MALAISE [None]
